FAERS Safety Report 23804381 (Version 1)
Quarter: 2024Q2

REPORT INFORMATION
  Report Type: Spontaneous
  Country: US (occurrence: US)
  Receive Date: 20240501
  Receipt Date: 20240501
  Transmission Date: 20240716
  Serious: Yes (Hospitalization)
  Sender: FDA-Public Use
  Company Number: US-LEX-000263

PATIENT
  Age: 70 Year
  Sex: Male

DRUGS (3)
  1. INPEFA [Suspect]
     Active Substance: SOTAGLIFLOZIN
     Indication: Cardiac failure congestive
     Dosage: IN THE MORNING
     Route: 048
     Dates: start: 2023, end: 20231122
  2. INPEFA [Suspect]
     Active Substance: SOTAGLIFLOZIN
     Indication: Cardiac failure congestive
     Dosage: IN THE MORNING
     Route: 048
     Dates: start: 2023, end: 202312
  3. INPEFA [Suspect]
     Active Substance: SOTAGLIFLOZIN
     Indication: Cardiac failure congestive
     Dosage: IN THE MORNING
     Route: 048

REACTIONS (3)
  - Myocardial infarction [Recovered/Resolved]
  - Product use issue [Unknown]
  - Therapy interrupted [Unknown]

NARRATIVE: CASE EVENT DATE: 20231120
